FAERS Safety Report 15862029 (Version 1)
Quarter: 2019Q1

REPORT INFORMATION
  Report Type: Spontaneous
  Country: FR (occurrence: FR)
  Receive Date: 20190124
  Receipt Date: 20190124
  Transmission Date: 20190417
  Serious: Yes (Hospitalization)
  Sender: FDA-Public Use
  Company Number: PHHY2019FR012771

PATIENT
  Age: 101 Year
  Sex: Female
  Weight: 44 kg

DRUGS (18)
  1. DIGOXINE [Suspect]
     Active Substance: DIGOXIN
     Dosage: 1 DF, QD (1/2-0-0 (0.25MG))
     Route: 048
     Dates: start: 20181206
  2. OXAZEPAM. [Suspect]
     Active Substance: OXAZEPAM
     Indication: ANXIETY
     Dosage: 5 MG, QD (0-0-1/2 (10 MG))
     Route: 048
     Dates: start: 20181102
  3. CHLORURE DE SODIUM [Suspect]
     Active Substance: SODIUM CHLORIDE
     Indication: HYPONATRAEMIA
     Dosage: 2000 MG, BID
     Route: 048
     Dates: start: 20181102
  4. REFRESH CELLUVISC [Suspect]
     Active Substance: CARBOXYMETHYLCELLULOSE SODIUM
     Indication: LACRIMATION DECREASED
     Dosage: 3 GTT, TID (1-1-1 GTE DANS LES 2 YEUX)
     Route: 047
     Dates: start: 20181102
  5. OXAZEPAM. [Suspect]
     Active Substance: OXAZEPAM
     Dosage: 5 MG, QD (0-0-1/2 (10 MG))
     Route: 048
     Dates: start: 20181206
  6. OFLOCET [Suspect]
     Active Substance: OFLOXACIN
     Dosage: 400 MG, BID
     Route: 048
     Dates: start: 20181127
  7. FUROSEMIDE. [Suspect]
     Active Substance: FUROSEMIDE
     Indication: HYPERTENSION
     Dosage: 1/2-0-0 (40MG)
     Route: 048
     Dates: start: 20181102
  8. SALBUTAMOL [Suspect]
     Active Substance: ALBUTEROL
     Dosage: 2 DF, BID (1-0-1 (2.5M/2.5ML))
     Route: 055
     Dates: start: 20181129
  9. SALBUTAMOL [Suspect]
     Active Substance: ALBUTEROL
     Indication: ASTHMA
     Dosage: 2 DF, BID (1-0-1 (2.5M/2.5ML))
     Route: 055
     Dates: start: 20181102
  10. KARDEGIC [Suspect]
     Active Substance: ASPIRIN DL-LYSINE
     Indication: THROMBOSIS PROPHYLAXIS
     Dosage: 1-0-0
     Route: 048
     Dates: start: 20181102
  11. BISOPROLOL [Suspect]
     Active Substance: BISOPROLOL
     Indication: HYPERTENSION
     Dosage: 1-0-0
     Route: 048
     Dates: start: 20181102
  12. DIGOXINE [Suspect]
     Active Substance: DIGOXIN
     Indication: CARDIAC FAILURE
     Dosage: 1 DF, QD (1/2-0-0 (0.25MG))
     Route: 048
     Dates: start: 20181102
  13. VITAMIN D3 [Suspect]
     Active Substance: CHOLECALCIFEROL
     Indication: HYPOVITAMINOSIS
     Dosage: 1 DF, QD
     Route: 048
     Dates: start: 20181102
  14. BUDESONIDE. [Suspect]
     Active Substance: BUDESONIDE
     Indication: ASTHMA
     Dosage: 2 DF, BID (1-0-1 (1MG/2ML))
     Route: 055
     Dates: start: 20181102
  15. BUDESONIDE. [Suspect]
     Active Substance: BUDESONIDE
     Dosage: 2 DF, BID (1-0-1 (1MG/2ML))
     Route: 055
     Dates: start: 20181129
  16. MACROGOL [Suspect]
     Active Substance: POLYETHYLENE GLYCOLS
     Indication: CONSTIPATION
     Dosage: 20 G, QD
     Route: 048
     Dates: start: 20181102
  17. CALCIUM [Suspect]
     Active Substance: CALCIUM
     Indication: HYPOVITAMINOSIS
     Dosage: 1 DF, QD
     Route: 048
     Dates: start: 20181102
  18. OFLOCET [Suspect]
     Active Substance: OFLOXACIN
     Indication: RESPIRATORY TRACT INFECTION
     Dosage: 400 MG, BID
     Route: 048
     Dates: start: 20181122

REACTIONS (2)
  - Hallucination [Recovering/Resolving]
  - Confusional state [Recovering/Resolving]

NARRATIVE: CASE EVENT DATE: 20181123
